FAERS Safety Report 10268996 (Version 2)
Quarter: 2014Q2

REPORT INFORMATION
  Report Type: Report from Study
  Country: US (occurrence: US)
  Receive Date: 20140630
  Receipt Date: 20140630
  Transmission Date: 20141212
  Serious: Yes (Hospitalization)
  Sender: FDA-Public Use
  Company Number: US-ABBVIE-06P-163-0340974-00

PATIENT
  Age: 0 Day
  Sex: Female
  Weight: 2.09 kg

DRUGS (5)
  1. RITONAVIR SOFT GELATIN CAPSULES [Suspect]
     Indication: MATERNAL EXPOSURE TIMING UNSPECIFIED
  2. ABACAVIR W/LAMIVUDINE [Suspect]
     Indication: MATERNAL EXPOSURE TIMING UNSPECIFIED
  3. ATAZANAVIR SULFATE [Suspect]
     Indication: MATERNAL EXPOSURE TIMING UNSPECIFIED
  4. GLYBURIDE [Suspect]
     Indication: MATERNAL EXPOSURE TIMING UNSPECIFIED
  5. ZIDOVUDINE [Concomitant]
     Indication: MATERNAL EXPOSURE TIMING UNSPECIFIED

REACTIONS (11)
  - Premature baby [Unknown]
  - Low birth weight baby [Unknown]
  - Hypoglycaemia [Unknown]
  - Hyperbilirubinaemia [Unknown]
  - Sepsis [Unknown]
  - Metabolic acidosis [Unknown]
  - Umbilical erythema [Unknown]
  - Abdominal distension [Unknown]
  - Infusion site extravasation [Unknown]
  - Feeling jittery [Recovered/Resolved]
  - Exposure during pregnancy [Unknown]
